FAERS Safety Report 12272410 (Version 1)
Quarter: 2016Q2

REPORT INFORMATION
  Report Type: Report from Study
  Country: RU (occurrence: RU)
  Receive Date: 20160415
  Receipt Date: 20160415
  Transmission Date: 20160815
  Serious: Yes (Life-Threatening, Hospitalization)
  Sender: FDA-Public Use
  Company Number: RU-ABBVIE-15P-251-1528288-00

PATIENT
  Age: 63 Year
  Sex: Male

DRUGS (36)
  1. DEXAMETAZON [Concomitant]
     Indication: INFUSION RELATED REACTION
     Dates: start: 20151117, end: 20151117
  2. PARACETAMOLITO [Concomitant]
     Indication: INFUSION RELATED REACTION
     Dates: start: 20151215, end: 20151215
  3. BENDAMUSTINE [Suspect]
     Active Substance: BENDAMUSTINE
     Indication: CHRONIC LYMPHOCYTIC LEUKAEMIA
     Route: 042
     Dates: start: 20151020
  4. DEXAMETAZON [Concomitant]
     Dates: start: 20160204, end: 20160204
  5. PARACETAMOLITO [Concomitant]
     Dates: start: 20160204, end: 20160204
  6. LEUCOSTIM [Concomitant]
     Active Substance: FILGRASTIM
     Indication: INFECTION PROPHYLAXIS
     Dates: start: 20151222, end: 20151226
  7. ALLOPURINOL. [Concomitant]
     Active Substance: ALLOPURINOL
     Indication: TUMOUR LYSIS SYNDROME
  8. ACYCLOVIR. [Concomitant]
     Active Substance: ACYCLOVIR
     Indication: INFECTION PROPHYLAXIS
     Dates: start: 20150921
  9. METAMIZOLE [Concomitant]
     Active Substance: METAMIZOLE
     Indication: PROPHYLAXIS
     Dates: start: 20150923, end: 20150923
  10. METAMIZOLE [Concomitant]
     Active Substance: METAMIZOLE
     Indication: PROPHYLAXIS
     Dates: start: 20151215, end: 20151216
  11. DIMEDROL [Concomitant]
     Active Substance: DIPHENHYDRAMINE
     Dates: start: 20160204, end: 20160205
  12. DEXAMETAZON [Concomitant]
     Indication: PROPHYLAXIS
     Dates: start: 20151020, end: 20151020
  13. PARACETAMOLITO [Concomitant]
     Indication: PROPHYLAXIS
     Dates: start: 20151117, end: 20151117
  14. PARACETAMOLITO [Concomitant]
     Dates: start: 20160304, end: 20160304
  15. METAMIZOLE [Concomitant]
     Active Substance: METAMIZOLE
     Dates: start: 20160304, end: 20160305
  16. SULPEROZONE [Concomitant]
     Indication: INFECTION PROPHYLAXIS
     Dates: start: 20151218, end: 20151227
  17. DIMEDROL [Concomitant]
     Active Substance: DIPHENHYDRAMINE
     Indication: TUMOUR LYSIS SYNDROME
     Dates: start: 20151020, end: 20151021
  18. DIMEDROL [Concomitant]
     Active Substance: DIPHENHYDRAMINE
     Dates: start: 20151215, end: 20151216
  19. DIMEDROL [Concomitant]
     Active Substance: DIPHENHYDRAMINE
     Dates: start: 20160304, end: 20160305
  20. DEXAMETAZON [Concomitant]
     Dates: start: 20151215, end: 20151215
  21. DEXAMETAZON [Concomitant]
     Dates: start: 20160304, end: 20160304
  22. RITUXIMAB [Suspect]
     Active Substance: RITUXIMAB
     Indication: CHRONIC LYMPHOCYTIC LEUKAEMIA
     Route: 042
     Dates: start: 20151020
  23. METAMIZOLE [Concomitant]
     Active Substance: METAMIZOLE
     Indication: INFUSION RELATED REACTION
     Dates: start: 20160204, end: 20160205
  24. DIMEDROL [Concomitant]
     Active Substance: DIPHENHYDRAMINE
     Indication: PROPHYLAXIS
     Dates: start: 20150923, end: 20150923
  25. DIMEDROL [Concomitant]
     Active Substance: DIPHENHYDRAMINE
     Dates: start: 20151117, end: 20151118
  26. EMESETI [Concomitant]
     Dates: start: 20151216, end: 20151216
  27. CIPROFLOXACIN. [Concomitant]
     Active Substance: CIPROFLOXACIN
     Indication: INFECTION PROPHYLAXIS
     Dates: start: 20151217, end: 20151219
  28. ALLOPURINOL. [Concomitant]
     Active Substance: ALLOPURINOL
     Indication: PROPHYLAXIS
     Dates: start: 20150921, end: 20151214
  29. FUROSEMIDE. [Concomitant]
     Active Substance: FUROSEMIDE
     Indication: OEDEMA
     Dates: start: 20150923, end: 20150923
  30. FUROSEMIDE. [Concomitant]
     Active Substance: FUROSEMIDE
     Indication: PROPHYLAXIS
  31. EMESETI [Concomitant]
     Indication: ANTIEMETIC SUPPORTIVE CARE
     Dates: start: 20151021, end: 20151021
  32. EMESETI [Concomitant]
     Dates: start: 20160305, end: 20160305
  33. ANALGIN [Concomitant]
     Active Substance: METAMIZOLE SODIUM
     Indication: INFUSION RELATED REACTION
  34. VENETOCLAX [Suspect]
     Active Substance: VENETOCLAX
     Indication: CHRONIC LYMPHOCYTIC LEUKAEMIA
     Route: 048
  35. METAMIZOLE [Concomitant]
     Active Substance: METAMIZOLE
     Indication: TUMOUR LYSIS SYNDROME
     Dates: start: 20151020, end: 20151021
  36. ANALGIN [Concomitant]
     Active Substance: METAMIZOLE SODIUM
     Indication: PROPHYLAXIS
     Dates: start: 20151117, end: 20151118

REACTIONS (1)
  - Neutropenia [Recovered/Resolved]

NARRATIVE: CASE EVENT DATE: 20151224
